FAERS Safety Report 10740107 (Version 1)
Quarter: 2015Q1

REPORT INFORMATION
  Report Type: Spontaneous
  Country: FR (occurrence: FR)
  Receive Date: 20150127
  Receipt Date: 20150127
  Transmission Date: 20150721
  Serious: Yes (Hospitalization)
  Sender: FDA-Public Use
  Company Number: FR-BRISTOL-MYERS SQUIBB COMPANY-BMS-2015-002521

PATIENT
  Age: 76 Year
  Sex: Male

DRUGS (7)
  1. LEVOTHYROX [Concomitant]
     Active Substance: LEVOTHYROXINE
  2. YERVOY [Suspect]
     Active Substance: IPILIMUMAB
     Indication: METASTATIC MALIGNANT MELANOMA
     Dosage: 2 DF, QMO
     Route: 042
     Dates: start: 20140901, end: 20140926
  3. INNOVAIR [Concomitant]
     Active Substance: BECLOMETHASONE DIPROPIONATE\FORMOTEROL
  4. PARACETAMOL [Concomitant]
     Active Substance: ACETAMINOPHEN
  5. APRANAX                            /00256201/ [Concomitant]
     Active Substance: NAPROXEN
  6. FUROSEMIDE. [Concomitant]
     Active Substance: FUROSEMIDE
  7. FLIXOTIDE [Concomitant]
     Active Substance: FLUTICASONE PROPIONATE

REACTIONS (4)
  - Renal failure [Not Recovered/Not Resolved]
  - Bronchospasm [Not Recovered/Not Resolved]
  - Pericarditis [Unknown]
  - Anaemia [Unknown]

NARRATIVE: CASE EVENT DATE: 20140922
